FAERS Safety Report 17216212 (Version 1)
Quarter: 2019Q4

REPORT INFORMATION
  Report Type: Report from Study
  Country: US (occurrence: US)
  Receive Date: 20191230
  Receipt Date: 20191230
  Transmission Date: 20200122
  Serious: Yes (Death, Hospitalization, Other)
  Sender: FDA-Public Use
  Company Number: US-ACTELION-A-US2016-131376

PATIENT
  Age: 77 Year
  Sex: Female
  Weight: 82.54 kg

DRUGS (2)
  1. OXYGEN. [Concomitant]
     Active Substance: OXYGEN
  2. OPSUMIT [Suspect]
     Active Substance: MACITENTAN
     Indication: PULMONARY ARTERIAL HYPERTENSION
     Dosage: 10 MG, QD
     Route: 048
     Dates: end: 20191208

REACTIONS (14)
  - Pulmonary hypertension [Unknown]
  - Cardiac failure congestive [Unknown]
  - Upper respiratory tract congestion [Unknown]
  - Syncope [Unknown]
  - Bronchitis [Unknown]
  - Abdominal pain upper [Unknown]
  - Death [Fatal]
  - Sinusitis [Unknown]
  - Dizziness [Unknown]
  - Malaise [Unknown]
  - Hypoacusis [Unknown]
  - Nasal congestion [Unknown]
  - Confusional state [Unknown]
  - Back pain [Unknown]

NARRATIVE: CASE EVENT DATE: 20191208
